FAERS Safety Report 10004380 (Version 3)
Quarter: 2014Q2

REPORT INFORMATION
  Report Type: Report from Study
  Country: ZA (occurrence: ZA)
  Receive Date: 20140312
  Receipt Date: 20140425
  Transmission Date: 20141212
  Serious: Yes (Death, Other)
  Sender: FDA-Public Use
  Company Number: PHHY2014ZA030237

PATIENT
  Sex: Male

DRUGS (2)
  1. GLIVEC [Suspect]
     Dosage: 400 MG, DAILY
  2. GLIVEC [Suspect]
     Dosage: 800 MG, DAILY

REACTIONS (2)
  - Death [Fatal]
  - Disease progression [Unknown]
